FAERS Safety Report 6920389-9 (Version None)
Quarter: 2010Q3

REPORT INFORMATION
  Report Type: 
  Country: None (occurrence: None)
  Receive Date: 20100812
  Receipt Date: 20100809
  Transmission Date: 20110219
  Serious: Yes (Hospitalization, Congenital Anomaly, Other)
  Sender: FDA-Public Use
  Company Number: US-ASTRAZENECA-2006UW21248

PATIENT
  Age: 15287 Day
  Sex: Female
  Weight: 65.8 kg

DRUGS (27)
  1. SEROQUEL [Suspect]
     Indication: ANXIETY
     Route: 048
     Dates: start: 20060208
  2. SEROQUEL [Suspect]
     Indication: DEPRESSION
     Route: 048
     Dates: start: 20060208
  3. SEROQUEL [Suspect]
     Dosage: 300MG - 600 MG
     Route: 048
     Dates: start: 20060217
  4. SEROQUEL [Suspect]
     Dosage: 300MG - 600 MG
     Route: 048
     Dates: start: 20060217
  5. SEROQUEL [Suspect]
     Dosage: 300-600 MG
     Route: 048
     Dates: start: 20060208, end: 20070130
  6. SEROQUEL [Suspect]
     Dosage: 300-600 MG
     Route: 048
     Dates: start: 20060208, end: 20070130
  7. METFORMIN HCL [Concomitant]
     Route: 065
  8. ACETAMINOPHEN [Concomitant]
     Route: 065
  9. NAPROXEN [Concomitant]
     Route: 065
  10. KEFLEX [Concomitant]
     Dosage: 4 TIMES A DAY
     Route: 065
  11. PREMARIN [Concomitant]
     Route: 065
  12. TORADOL [Concomitant]
     Route: 065
  13. DURACT [Concomitant]
     Route: 065
  14. VANTIN [Concomitant]
     Route: 065
  15. LYRICA [Concomitant]
     Route: 065
  16. CYMBALTA [Concomitant]
     Route: 065
  17. GABAPENTIN [Concomitant]
     Route: 065
  18. AMITRIPTYLINE HYDROCHLORIDE [Concomitant]
     Route: 065
  19. OXYCODONE HCL AND ACETAMINOPHEN [Concomitant]
     Route: 065
  20. HUMOLOG INSULIN [Concomitant]
     Dosage: 10 UNITS, 32 UNITS, 36 UNITS DAILY
     Route: 058
  21. LIPITOR [Concomitant]
     Route: 065
  22. ZANTAC [Concomitant]
     Route: 048
  23. LANTUS [Concomitant]
     Dosage: 20 UNITS-35 UNITS
     Route: 058
  24. VYTORIN [Concomitant]
     Route: 065
  25. ASPIRIN [Concomitant]
     Route: 048
  26. AMBIEN [Concomitant]
     Dosage: 0.5 MG-5 MG
     Route: 065
  27. AMBILITINE [Concomitant]
     Dates: start: 20060101, end: 20090101

REACTIONS (13)
  - ABDOMINAL PAIN [None]
  - ADVERSE DRUG REACTION [None]
  - CHEST PAIN [None]
  - DIABETES MELLITUS INADEQUATE CONTROL [None]
  - DIABETIC COMPLICATION [None]
  - DIZZINESS [None]
  - FLANK PAIN [None]
  - GLYCOSURIA [None]
  - HYPERGLYCAEMIA [None]
  - HYPERLIPIDAEMIA [None]
  - PAIN IN EXTREMITY [None]
  - SUICIDAL IDEATION [None]
  - TYPE 2 DIABETES MELLITUS [None]
